FAERS Safety Report 6068263-7 (Version None)
Quarter: 2009Q1

REPORT INFORMATION
  Report Type: 
  Country: None (occurrence: None)
  Receive Date: 20090206
  Receipt Date: 20090127
  Transmission Date: 20090719
  Serious: Yes (Other)
  Sender: FDA-Public Use
  Company Number: PHBS2009US00651

PATIENT
  Age: 28 Year
  Sex: Male

DRUGS (4)
  1. CLOZARIL [Suspect]
     Indication: SCHIZOPHRENIA
     Dosage: 400 MG / DAILY
     Route: 065
  2. RISPERIDONE [Suspect]
     Dosage: 6 MG/DAY
     Route: 065
  3. ARIPIPRAZOLE [Suspect]
     Dosage: 30 MG/DAY
     Route: 065
  4. VALPROATE SODIUM [Concomitant]
     Dosage: 1,000 MG/DAY
     Route: 065

REACTIONS (23)
  - ASTHENIA [None]
  - BLOOD CREATINE PHOSPHOKINASE INCREASED [None]
  - COMPUTERISED TOMOGRAM ABNORMAL [None]
  - DIARRHOEA [None]
  - DYSPHAGIA [None]
  - EJECTION FRACTION ABNORMAL [None]
  - ELECTROCARDIOGRAM [None]
  - ENDOTRACHEAL INTUBATION [None]
  - HYPERTENSION [None]
  - MUSCULAR WEAKNESS [None]
  - MUSCULOSKELETAL STIFFNESS [None]
  - MYOCARDIAL INFARCTION [None]
  - MYOGLOBINURIA [None]
  - NEUROLEPTIC MALIGNANT SYNDROME [None]
  - PAIN IN EXTREMITY [None]
  - PSYCHOTIC DISORDER [None]
  - PULMONARY EMBOLISM [None]
  - PULMONARY OEDEMA [None]
  - PYREXIA [None]
  - TACHYCARDIA [None]
  - TACHYPNOEA [None]
  - TROPONIN INCREASED [None]
  - WHITE BLOOD CELL DISORDER [None]
